FAERS Safety Report 18360538 (Version 2)
Quarter: 2021Q2

REPORT INFORMATION
  Report Type: Spontaneous
  Country: US (occurrence: US)
  Receive Date: 20201008
  Receipt Date: 20210521
  Transmission Date: 20210717
  Serious: No
  Sender: FDA-Public Use
  Company Number: US-PFIZER INC-2020385453

PATIENT
  Age: 77 Year
  Sex: Male

DRUGS (2)
  1. NIVESTYM [Suspect]
     Active Substance: FILGRASTIM-AAFI
     Indication: NEOPLASM MALIGNANT
     Dosage: 480 UG, CYCLIC (7 DAYS EVERY 2 WEEKS AFTER CHEMO; NIVESTYM DAY 2?8 EVERY 2 WEEKS; FREQUENCY: DAILY F
     Route: 058
  2. NIVESTYM [Suspect]
     Active Substance: FILGRASTIM-AAFI
     Indication: CHEMOTHERAPY
     Dosage: UNK

REACTIONS (2)
  - Off label use [Unknown]
  - Hypoacusis [Unknown]
